FAERS Safety Report 7775560-3 (Version None)
Quarter: 2011Q3

REPORT INFORMATION
  Report Type: 
  Country: None (occurrence: None)
  Receive Date: 20110921
  Receipt Date: 20110914
  Transmission Date: 20111222
  Serious: Yes (Other)
  Sender: FDA-Public Use
  Company Number: 2011SP039003

PATIENT
  Sex: Female

DRUGS (4)
  1. LITHIUM [Concomitant]
  2. CYMBALTA [Concomitant]
  3. SAPHRIS [Suspect]
     Indication: SCHIZOPHRENIA
     Dosage: 10 MG; HS; SL
     Route: 060
     Dates: start: 20110628
  4. PROZAC [Concomitant]

REACTIONS (1)
  - URINARY RETENTION [None]
